FAERS Safety Report 17114956 (Version 2)
Quarter: 2020Q1

REPORT INFORMATION
  Report Type: Spontaneous
  Country: US (occurrence: US)
  Receive Date: 20191205
  Receipt Date: 20200316
  Transmission Date: 20200409
  Serious: Yes (Other)
  Sender: FDA-Public Use
  Company Number: US-009507513-1912USA000156

PATIENT
  Sex: Female

DRUGS (1)
  1. NEXPLANON [Suspect]
     Active Substance: ETONOGESTREL
     Indication: CONTRACEPTION
     Dosage: 68 MILLIGRAM IMPLANT, ONCE
     Route: 059
     Dates: start: 20160809

REACTIONS (2)
  - Pregnancy with implant contraceptive [Unknown]
  - Unintended pregnancy [Unknown]
